FAERS Safety Report 9247261 (Version 1)
Quarter: 2013Q2

REPORT INFORMATION
  Report Type: Spontaneous
  Country: US (occurrence: US)
  Receive Date: 20130423
  Receipt Date: 20130423
  Transmission Date: 20140414
  Serious: No
  Sender: FDA-Public Use
  Company Number: US-BIOGENIDEC-2013BI036558

PATIENT
  Sex: Female

DRUGS (3)
  1. TYSABRI [Suspect]
     Indication: MULTIPLE SCLEROSIS
     Route: 042
     Dates: start: 20110912
  2. AVONEX [Concomitant]
     Indication: MULTIPLE SCLEROSIS
     Route: 030
     Dates: start: 20070201
  3. AVONEX [Concomitant]
     Indication: MULTIPLE SCLEROSIS
     Route: 030
     Dates: start: 20070202

REACTIONS (8)
  - Anger [Unknown]
  - Pharyngeal oedema [Unknown]
  - Abdominal distension [Unknown]
  - Food allergy [Unknown]
  - Pruritus [Unknown]
  - Urticaria [Unknown]
  - Fatigue [Unknown]
  - Headache [Unknown]
